FAERS Safety Report 7969700-0 (Version None)
Quarter: 2011Q4

REPORT INFORMATION
  Report Type: 
  Country: None (occurrence: None)
  Receive Date: 20111121
  Receipt Date: 20110909
  Transmission Date: 20120403
  Serious: No
  Sender: FDA-Public Use
  Company Number: 1000023747

PATIENT
  Age: 64 Year
  Sex: Female

DRUGS (8)
  1. VIIBRYD [Suspect]
     Indication: ANXIETY
     Dosage: 10MG (10 MG, 1 IN 1 D), ORAL
     Route: 048
     Dates: start: 20110801, end: 20110801
  2. COZAAR [Concomitant]
  3. SIMVASTATIN [Concomitant]
  4. PLAVIX (CLOPIDOGREL BISULFATE) (CLOPIDOGREL BISULFATE) [Concomitant]
  5. ADVAIR (SERETIDE) (SERETIDE) [Concomitant]
  6. VIIBRYD [Suspect]
     Indication: ANXIETY
     Dosage: 40MG (40 MG, 1 IN 1 D), ORAL
     Route: 048
     Dates: start: 20110801, end: 20110801
  7. LASIX [Concomitant]
  8. ALBUTEROL (ALBUTEROL) (ALBUTEROL) [Concomitant]

REACTIONS (2)
  - NAUSEA [None]
  - DYSPEPSIA [None]
